FAERS Safety Report 8611925-5 (Version None)
Quarter: 2012Q3

REPORT INFORMATION
  Report Type: 
  Country: None (occurrence: None)
  Receive Date: 20120822
  Receipt Date: 20101230
  Transmission Date: 20120928
  Serious: Yes (Other)
  Sender: FDA-Public Use
  Company Number: DE-ROCHE-696136

PATIENT
  Sex: Male
  Weight: 70 kg

DRUGS (5)
  1. ROACTEMRA [Suspect]
     Route: 042
     Dates: start: 20100113, end: 20100113
  2. ROACTEMRA [Suspect]
     Route: 042
     Dates: start: 20100210, end: 20101210
  3. ROACTEMRA [Suspect]
     Indication: RHEUMATOID ARTHRITIS
     Route: 042
  4. ROACTEMRA [Suspect]
     Route: 042
     Dates: start: 20091117, end: 20091117
  5. ROACTEMRA [Suspect]
     Route: 042
     Dates: start: 20091217, end: 20091217

REACTIONS (1)
  - BURSITIS [None]
